FAERS Safety Report 4364332-8 (Version None)
Quarter: 2004Q2

REPORT INFORMATION
  Report Type: 
  Country: None (occurrence: None)
  Receive Date: 20040525
  Receipt Date: 20031017
  Transmission Date: 20050107
  Serious: Yes (Other)
  Sender: FDA-Public Use
  Company Number: US-BRISTOL-MYERS SQUIBB COMPANY-12413647

PATIENT
  Age: 60 Year
  Sex: Male

DRUGS (1)
  1. CYTOXAN [Suspect]
     Indication: LEUKAEMIA
     Dosage: 200 OF 420 MG ADMINISTERED

REACTIONS (2)
  - FEBRILE NEUTROPENIA [None]
  - MEDICATION ERROR [None]
